FAERS Safety Report 12997737 (Version 1)
Quarter: 2016Q4

REPORT INFORMATION
  Report Type: Spontaneous
  Country: US (occurrence: US)
  Receive Date: 20161202
  Receipt Date: 20161202
  Transmission Date: 20170207
  Serious: Yes (Hospitalization)
  Sender: FDA-Public Use
  Company Number: None

PATIENT
  Age: 71 Year
  Sex: Male
  Weight: 99.3 kg

DRUGS (2)
  1. TAXOTERE [Suspect]
     Active Substance: DOCETAXEL
     Dates: end: 20161025
  2. PREDNISONE. [Suspect]
     Active Substance: PREDNISONE
     Dates: end: 20161128

REACTIONS (5)
  - Vomiting [None]
  - Haemoglobin decreased [None]
  - Platelet count decreased [None]
  - Duodenal ulcer [None]
  - Fatigue [None]

NARRATIVE: CASE EVENT DATE: 20161130
